FAERS Safety Report 23095405 (Version 1)
Quarter: 2023Q4

REPORT INFORMATION
  Report Type: Spontaneous
  Country: CN (occurrence: None)
  Receive Date: 20231023
  Receipt Date: 20231023
  Transmission Date: 20240110
  Serious: Yes (Hospitalization)
  Sender: FDA-Public Use
  Company Number: 2023A239862

PATIENT
  Age: 43 Year
  Sex: Female
  Weight: 49.9 kg

DRUGS (1)
  1. QUETIAPINE FUMARATE [Suspect]
     Active Substance: QUETIAPINE FUMARATE
     Indication: Abnormal behaviour
     Dosage: 1 TABLET AT NOON, 2 TABLETS AT NIGHT
     Route: 048
     Dates: start: 20230918, end: 20231010

REACTIONS (2)
  - Lipids increased [Not Recovered/Not Resolved]
  - Hepatic function abnormal [Not Recovered/Not Resolved]

NARRATIVE: CASE EVENT DATE: 20231010
